FAERS Safety Report 4988269-6 (Version None)
Quarter: 2006Q2

REPORT INFORMATION
  Report Type: 
  Country: None (occurrence: None)
  Receive Date: 20060425
  Receipt Date: 20060418
  Transmission Date: 20061013
  Serious: Yes (Death, Life-Threatening, Disabling)
  Sender: FDA-Public Use
  Company Number: TR-2006-008980

PATIENT
  Age: 78 Year
  Sex: Female
  Weight: 85 kg

DRUGS (4)
  1. ULTRAVIST 300 [Suspect]
     Indication: COMPUTERISED TOMOGRAM
     Dosage: 50 ML, IV BOLUS
     Route: 040
     Dates: start: 20060228, end: 20060228
  2. DIGOXIN [Concomitant]
  3. TELEBRIX (IOXITALMATE MONOETHANOLAMINE) INFUSION [Suspect]
  4. IOXITALAMATE MEGLUMIMINE) [Concomitant]

REACTIONS (4)
  - CARDIAC ARREST [None]
  - CARDIOVASCULAR INSUFFICIENCY [None]
  - HYPOXIC ENCEPHALOPATHY [None]
  - LOSS OF CONSCIOUSNESS [None]
